FAERS Safety Report 9630733 (Version 1)
Quarter: 2013Q4

REPORT INFORMATION
  Report Type: Spontaneous
  Country: US (occurrence: None)
  Receive Date: 20131007
  Receipt Date: 20131007
  Transmission Date: 20140711
  Serious: Yes (Disabling)
  Sender: FDA-Public Use
  Company Number: 1442490

PATIENT
  Age: 70 Year
  Sex: Female
  Weight: 68.18 kg

DRUGS (10)
  1. OXALIPLATIN INJECTION (OXALIPLATIN) [Suspect]
     Indication: COLON CANCER
     Dosage: 150 MG MILLIGRAM(S) (2 WEEK), INTRAVENOUS (NOT OTHERWISE SPECIFIED)??
     Route: 042
  2. ELOXATIN [Concomitant]
  3. RESTASIS [Concomitant]
  4. LOVENOX [Concomitant]
  5. FERROUS SULFATE [Concomitant]
  6. ZOFRAN [Concomitant]
  7. POTASSIUM CHLORIDE [Concomitant]
  8. XELODA [Concomitant]
  9. DECADRON [Concomitant]
  10. KYTRIL [Concomitant]

REACTIONS (5)
  - Speech disorder [None]
  - Neuropathy peripheral [None]
  - Hypoaesthesia oral [None]
  - Hypoaesthesia oral [None]
  - Gait disturbance [None]
